FAERS Safety Report 7175408-4 (Version None)
Quarter: 2010Q4

REPORT INFORMATION
  Report Type: 
  Country: None (occurrence: None)
  Receive Date: 20101220
  Receipt Date: 20100311
  Transmission Date: 20110411
  Serious: No
  Sender: FDA-Public Use
  Company Number: US-AMGEN-TCS397308

PATIENT

DRUGS (2)
  1. ENBREL [Suspect]
     Indication: RHEUMATOID ARTHRITIS
     Dosage: 50 MG, QWK
     Route: 058
  2. METHOTREXATE [Concomitant]
     Dosage: 10 MG, QWK
     Route: 048

REACTIONS (9)
  - BODY TINEA [None]
  - BONE DISORDER [None]
  - DIZZINESS [None]
  - DRY EYE [None]
  - FATIGUE [None]
  - JOINT SWELLING [None]
  - NODULE ON EXTREMITY [None]
  - RASH MACULAR [None]
  - RHEUMATOID ARTHRITIS [None]
